FAERS Safety Report 9129929 (Version 1)
Quarter: 2013Q1

REPORT INFORMATION
  Report Type: Report from Study
  Country: CA (occurrence: CA)
  Receive Date: 20130228
  Receipt Date: 20130228
  Transmission Date: 20140127
  Serious: Yes (Death)
  Sender: FDA-Public Use
  Company Number: CA-ROCHE-1195110

PATIENT
  Sex: Male
  Weight: 78 kg

DRUGS (10)
  1. AVASTIN [Suspect]
     Indication: COLORECTAL CANCER METASTATIC
     Route: 042
     Dates: start: 20100429, end: 20100520
  2. GLYBURIDE [Concomitant]
  3. DIOVAN [Concomitant]
  4. NORVASC [Concomitant]
  5. CRESTOR [Concomitant]
  6. IRON SULFATE [Concomitant]
  7. VITAMIN B12 [Concomitant]
  8. VITAMIN E [Concomitant]
  9. LORAZEPAM [Concomitant]
  10. METFORMIN [Concomitant]

REACTIONS (1)
  - Bacterial infection [Fatal]
